FAERS Safety Report 20507337 (Version 2)
Quarter: 2022Q1

REPORT INFORMATION
  Report Type: Spontaneous
  Country: IN (occurrence: IN)
  Receive Date: 20220223
  Receipt Date: 20220314
  Transmission Date: 20220423
  Serious: Yes (Hospitalization, Other)
  Sender: FDA-Public Use
  Company Number: IN-PFIZER INC-202200269414

PATIENT
  Age: 59 Year
  Sex: Female

DRUGS (4)
  1. PALBOCICLIB [Suspect]
     Active Substance: PALBOCICLIB
     Dosage: 125 MG, 1X/DAY
     Route: 048
     Dates: start: 20210220
  2. PALBOCICLIB [Suspect]
     Active Substance: PALBOCICLIB
     Dosage: UNK, CYCLIC
     Route: 048
     Dates: start: 202102, end: 202110
  3. FASLODEX [Concomitant]
     Active Substance: FULVESTRANT
     Dosage: UNK
     Dates: start: 202102, end: 202110
  4. AROMASIN [Concomitant]
     Active Substance: EXEMESTANE
     Dosage: 25 MG, 1X/DAY

REACTIONS (2)
  - Mastectomy [Unknown]
  - Full blood count abnormal [Unknown]

NARRATIVE: CASE EVENT DATE: 20211101
